FAERS Safety Report 25440785 (Version 1)
Quarter: 2025Q2

REPORT INFORMATION
  Report Type: Spontaneous
  Country: DE (occurrence: DE)
  Receive Date: 20250616
  Receipt Date: 20250616
  Transmission Date: 20250717
  Serious: Yes (Other)
  Sender: SANDOZ
  Company Number: DE-SANDOZ-SDZ2025DE040767

PATIENT
  Age: 16 Year
  Sex: Male

DRUGS (2)
  1. ADALIMUMAB [Suspect]
     Active Substance: ADALIMUMAB
     Indication: Chronic recurrent multifocal osteomyelitis
     Dosage: 40 MG, Q2W
     Route: 058
     Dates: start: 2019, end: 202205
  2. ADALIMUMAB [Suspect]
     Active Substance: ADALIMUMAB
     Indication: Acne conglobata

REACTIONS (2)
  - Paradoxical psoriasis [Recovering/Resolving]
  - Drug effective for unapproved indication [Unknown]

NARRATIVE: CASE EVENT DATE: 20210901
